FAERS Safety Report 5151875-2 (Version None)
Quarter: 2006Q4

REPORT INFORMATION
  Report Type: 
  Country: None (occurrence: None)
  Receive Date: 20061109
  Receipt Date: 20061027
  Transmission Date: 20070319
  Serious: Yes (Death, Life-Threatening, Other)
  Sender: FDA-Public Use
  Company Number: 2006127519

PATIENT
  Age: 81 Year
  Sex: Female

DRUGS (11)
  1. ATARAX [Suspect]
     Indication: RESTLESSNESS
     Dosage: 50 MG (50 MG, ONCE)
     Dates: start: 20061013, end: 20061013
  2. LASIX [Concomitant]
  3. DORNER (BERAPROST SODIUM) [Concomitant]
  4. WARFARIN SODIUM [Concomitant]
  5. TICLOPIDINE HCL [Concomitant]
  6. DIGOXIN [Concomitant]
  7. VERAPAMIL HYDROCHLORIDE [Concomitant]
  8. PRAVASTATIN [Concomitant]
  9. ZYVOX [Concomitant]
  10. PURSENNID (SENNA LEAF) [Concomitant]
  11. SODIUM BICARBONATE IN PLASTIC CONTAINER [Concomitant]

REACTIONS (5)
  - BRAIN STEM INFARCTION [None]
  - CARDIO-RESPIRATORY ARREST [None]
  - HEART RATE DECREASED [None]
  - RESPIRATORY DEPRESSION [None]
  - RESPIRATORY FAILURE [None]
